FAERS Safety Report 13528262 (Version 1)
Quarter: 2017Q2

REPORT INFORMATION
  Report Type: Spontaneous
  Country: US (occurrence: US)
  Receive Date: 20170509
  Receipt Date: 20170509
  Transmission Date: 20170830
  Serious: Yes (Other)
  Sender: FDA-Public Use
  Company Number: US-PFIZER INC-2017199404

PATIENT
  Sex: Male

DRUGS (1)
  1. XELJANZ XR [Suspect]
     Active Substance: TOFACITINIB CITRATE
     Dosage: 11 MG, DAILY
     Dates: start: 201702

REACTIONS (14)
  - Musculoskeletal stiffness [Recovering/Resolving]
  - Rash [Unknown]
  - Osteoarthritis [Unknown]
  - Arthralgia [Recovering/Resolving]
  - Thrombotic thrombocytopenic purpura [Unknown]
  - Joint swelling [Unknown]
  - Joint stiffness [Unknown]
  - Limb deformity [Unknown]
  - Pain in extremity [Unknown]
  - Synovitis [Unknown]
  - Head injury [Unknown]
  - Swelling [Unknown]
  - Grip strength decreased [Unknown]
  - Joint range of motion decreased [Unknown]
